FAERS Safety Report 8619080 (Version 5)
Quarter: 2013Q1

REPORT INFORMATION
  Report Type: Report from Study
  Country: US (occurrence: US)
  Receive Date: 20120618
  Receipt Date: 20130206
  Transmission Date: 20140127
  Serious: Yes (Hospitalization)
  Sender: FDA-Public Use
  Company Number: US-BRISTOL-MYERS SQUIBB COMPANY-16176638

PATIENT
  Age: 65 Year
  Sex: Male
  Weight: 61.68 kg

DRUGS (15)
  1. ERBITUX [Suspect]
     Indication: HEAD AND NECK CANCER
     Dosage: 5AUC DAY,02AUG11-02AUG11:400MG/M2,17AUG11-07SEP11,21SEP11-ONG:250MG/M2.
     Route: 042
     Dates: start: 20110802
  2. CARBOPLATIN [Suspect]
     Indication: HEAD AND NECK CANCER
     Dosage: 1DF:AUC 5,DAY 1,02AUG11-24AUG2011;23D.40%DOSE REDUCTION:28SEP11-ONG.
     Route: 042
     Dates: start: 20110802
  3. 5-FLUOROURACIL [Suspect]
     Indication: HEAD AND NECK CANCER
     Dosage: 1000MG/M2:02AUG11-06AUG11,20%DOSEREDUCTION:24AUG11-UNK,40%DOSE REDUCTION:28SEP11-ONG.
     Route: 042
     Dates: start: 20110802
  4. CLINDAMYCIN PHOSPHATE [Concomitant]
     Indication: RASH
     Dosage: ONGOING
     Dates: start: 20110802
  5. HYDROCODONE + ACETAMINOPHEN [Concomitant]
     Indication: PAIN
     Dates: start: 20110718
  6. MEGESTROL [Concomitant]
     Indication: DECREASED APPETITE
     Dosage: ONGOING
     Dates: start: 20101206
  7. NYSTATIN [Concomitant]
     Indication: FUNGAL INFECTION
     Dosage: ONGOING
     Dates: start: 20101206
  8. PROCHLORPERAZINE MALEATE [Concomitant]
     Indication: VOMITING
     Dosage: ONGOING
     Dates: start: 20110802
  9. PROCHLORPERAZINE MALEATE [Concomitant]
     Indication: NAUSEA
     Dosage: ONGOING
     Dates: start: 20110802
  10. PROMETHAZINE [Concomitant]
     Indication: NAUSEA
     Dosage: ONGOING
     Dates: start: 20110811
  11. PROMETHAZINE [Concomitant]
     Indication: VOMITING
     Dosage: ONGOING
     Dates: start: 20110811
  12. PROMETHAZINE [Concomitant]
     Indication: PROPHYLAXIS
     Dosage: ONGOING
     Dates: start: 20110811
  13. SENNOSIDE [Concomitant]
     Indication: CONSTIPATION
     Dosage: ONGOING
     Dates: start: 20110623
  14. ONDANSETRON HCL [Concomitant]
     Dosage: TAB
     Dates: start: 20100917
  15. ENSURE [Concomitant]

REACTIONS (4)
  - Nausea [Recovered/Resolved]
  - Diarrhoea [Recovered/Resolved]
  - Vomiting [Recovered/Resolved]
  - Anaemia [Recovered/Resolved]
